FAERS Safety Report 22223624 (Version 1)
Quarter: 2023Q2

REPORT INFORMATION
  Report Type: Spontaneous
  Country: US (occurrence: None)
  Receive Date: 20230417
  Receipt Date: 20230417
  Transmission Date: 20230721
  Serious: No
  Sender: FDA-Public Use
  Company Number: None

PATIENT
  Sex: Female
  Weight: 77.11 kg

DRUGS (15)
  1. CAPECITABINE [Suspect]
     Active Substance: CAPECITABINE
     Indication: Breast cancer female
     Dosage: 300MG MG TWICE DAILY ORAL - 14 DAYS ON, 7 D OFF?
     Route: 048
     Dates: start: 202302
  2. CAPECITABINE [Suspect]
     Active Substance: CAPECITABINE
     Indication: Breast cancer female
     Dosage: 1500MG TWICE DAILY ORAL - 14 DAYS ON, 7 D OFF
     Route: 048
     Dates: start: 202302
  3. ASCORBIC ACID [Concomitant]
  4. ASPIRIN [Concomitant]
  5. CELEXA [Concomitant]
  6. DICLOFENAC [Concomitant]
  7. ERYTHROMYCIN [Concomitant]
  8. LORAZEPAM [Concomitant]
  9. LIOTHYRONINE [Concomitant]
  10. MELATONIN [Concomitant]
     Active Substance: MELATONIN
  11. OMEPRAZOLE [Concomitant]
  12. SODIUM CHLORIDE [Concomitant]
  13. SYNTHROID [Concomitant]
  14. VITAMIN B12 [Concomitant]
     Active Substance: CYANOCOBALAMIN
  15. VITAMIN D3 [Concomitant]

REACTIONS (2)
  - Palmar-plantar erythrodysaesthesia syndrome [None]
  - Impaired work ability [None]
